FAERS Safety Report 5715387-7 (Version None)
Quarter: 2008Q2

REPORT INFORMATION
  Report Type: 
  Country: None (occurrence: None)
  Receive Date: 20080422
  Receipt Date: 20080415
  Transmission Date: 20081010
  Serious: Yes (Other)
  Sender: FDA-Public Use
  Company Number: 2008SP005164

PATIENT
  Sex: Female

DRUGS (5)
  1. CLARINEX D 24 HOUR [Suspect]
     Indication: BRONCHITIS
     Dosage: 1 DF;ONCE;PO
     Route: 048
     Dates: start: 20080311, end: 20080312
  2. CLARINEX D 24 HOUR [Suspect]
     Indication: COUGH
     Dosage: 1 DF;ONCE;PO
     Route: 048
     Dates: start: 20080311, end: 20080312
  3. CLARINEX D 24 HOUR [Suspect]
     Indication: INFLUENZA
     Dosage: 1 DF;ONCE;PO
     Route: 048
     Dates: start: 20080311, end: 20080312
  4. CLARINEX D 24 HOUR [Suspect]
     Indication: SINUS CONGESTION
     Dosage: 1 DF;ONCE;PO
     Route: 048
     Dates: start: 20080311, end: 20080312
  5. MAXALT [Suspect]
     Indication: DRUG USE FOR UNKNOWN INDICATION
     Dosage: 10 MG;

REACTIONS (8)
  - BLOOD PRESSURE SYSTOLIC INCREASED [None]
  - DELIRIUM [None]
  - ERYTHEMA [None]
  - HYPERHIDROSIS [None]
  - MALAISE [None]
  - REFUSAL OF TREATMENT BY PATIENT [None]
  - SPEECH DISORDER [None]
  - VOMITING [None]
